FAERS Safety Report 8482047-1 (Version None)
Quarter: 2012Q3

REPORT INFORMATION
  Report Type: 
  Country: None (occurrence: None)
  Receive Date: 20120702
  Receipt Date: 20120629
  Transmission Date: 20120928
  Serious: Yes (Death)
  Sender: FDA-Public Use
  Company Number: PHHY2012AU045505

PATIENT
  Sex: Female
  Weight: 71 kg

DRUGS (2)
  1. CLOZARIL [Suspect]
     Indication: SCHIZOPHRENIA
     Dosage: 700 MG, UNK
     Dates: start: 20010725
  2. SERTRALINE HYDROCHLORIDE [Concomitant]
     Indication: DEPRESSED MOOD
     Dosage: 200 MG, (MORNING)
     Route: 048

REACTIONS (1)
  - DEATH [None]
